FAERS Safety Report 9819586 (Version 1)
Quarter: 2014Q1

REPORT INFORMATION
  Report Type: Spontaneous
  Country: CA (occurrence: CA)
  Receive Date: 20140115
  Receipt Date: 20140115
  Transmission Date: 20141002
  Serious: Yes (Disabling)
  Sender: FDA-Public Use
  Company Number: CA-009507513-1401CAN006119

PATIENT
  Age: 69 Year
  Sex: Female

DRUGS (14)
  1. JANUMET [Suspect]
     Dosage: 1 DF, 2 EVERY 1 DAY
     Route: 048
  2. APO FUROSEMIDE [Concomitant]
     Route: 065
  3. APO-HYDRO [Concomitant]
     Route: 065
  4. APO-AMOXI [Concomitant]
     Route: 065
  5. APO ATORVASTATIN [Concomitant]
     Route: 065
  6. APO CARVEDILOL [Concomitant]
     Route: 065
  7. FERROUS SULFATE [Concomitant]
     Route: 065
  8. APO METFORMIN [Concomitant]
     Route: 065
  9. APO-RAMIPRIL [Concomitant]
     Route: 065
  10. EZETROL [Concomitant]
     Route: 065
  11. HYZAAR DS [Concomitant]
     Route: 065
  12. LEVEMIR [Concomitant]
     Route: 065
  13. NOVOLIN [Concomitant]
     Route: 065
  14. NOVORAPID [Concomitant]
     Route: 065

REACTIONS (5)
  - Activities of daily living impaired [Recovered/Resolved]
  - Arthralgia [Recovered/Resolved]
  - Dizziness [Recovered/Resolved]
  - Nausea [Recovered/Resolved]
  - Syncope [Recovered/Resolved]
